FAERS Safety Report 24455898 (Version 2)
Quarter: 2024Q4

REPORT INFORMATION
  Report Type: Report from Study
  Country: US (occurrence: US)
  Receive Date: 20241017
  Receipt Date: 20241018
  Transmission Date: 20250114
  Serious: No
  Sender: ROCHE
  Company Number: US-ROCHE-3500910

PATIENT
  Age: 4 Year
  Sex: Female

DRUGS (4)
  1. RITUXIMAB [Suspect]
     Active Substance: RITUXIMAB
     Indication: DiGeorge^s syndrome
     Route: 065
  2. MYCOPHENOLATE MOFETIL [Concomitant]
     Active Substance: MYCOPHENOLATE MOFETIL
  3. AZATHIOPRINE [Concomitant]
     Active Substance: AZATHIOPRINE
  4. VINCRISTINE [Concomitant]
     Active Substance: VINCRISTINE

REACTIONS (1)
  - B-lymphocyte abnormalities [Unknown]
